FAERS Safety Report 5064332-9 (Version None)
Quarter: 2006Q3

REPORT INFORMATION
  Report Type: 
  Country: None (occurrence: None)
  Receive Date: 20060728
  Receipt Date: 20060717
  Transmission Date: 20061208
  Serious: Yes (Other)
  Sender: FDA-Public Use
  Company Number: NSADSS2002017542

PATIENT
  Sex: Female
  Weight: 81.65 kg

DRUGS (13)
  1. REMICADE [Suspect]
     Route: 041
  2. REMICADE [Suspect]
     Route: 041
  3. REMICADE [Suspect]
     Route: 041
  4. REMICADE [Suspect]
     Route: 041
  5. REMICADE [Suspect]
     Route: 041
  6. REMICADE [Suspect]
     Route: 041
  7. REMICADE [Suspect]
     Route: 041
  8. REMICADE [Suspect]
     Route: 041
  9. REMICADE [Suspect]
     Route: 041
  10. REMICADE [Suspect]
     Indication: CROHN'S DISEASE
     Route: 041
  11. PENTASA [Concomitant]
  12. MESALAMINE [Concomitant]
  13. PREDNISONE TAB [Concomitant]

REACTIONS (4)
  - DRUG EXPOSURE DURING PREGNANCY [None]
  - HEADACHE [None]
  - MYALGIA [None]
  - PREMATURE LABOUR [None]
